FAERS Safety Report 4961730-6 (Version None)
Quarter: 2006Q2

REPORT INFORMATION
  Report Type: 
  Country: None (occurrence: None)
  Receive Date: 20060404
  Receipt Date: 20060222
  Transmission Date: 20061013
  Serious: Yes (Death, Life-Threatening)
  Sender: FDA-Public Use
  Company Number: PHBS2006JP02868

PATIENT
  Age: 45 Year
  Sex: Male
  Weight: 73 kg

DRUGS (12)
  1. SANDIMMUNE [Suspect]
     Indication: GRAFT VERSUS HOST DISEASE
     Route: 048
     Dates: start: 20041207, end: 20041229
  2. CIPROXAN [Concomitant]
     Route: 048
     Dates: start: 20041122, end: 20041205
  3. BAKTAR [Concomitant]
     Route: 048
     Dates: start: 20041120, end: 20041206
  4. ALLOPURINOL [Concomitant]
     Route: 048
     Dates: start: 20041108, end: 20041206
  5. CARDENALIN [Concomitant]
     Route: 048
     Dates: start: 20041108, end: 20041206
  6. ADALAT [Concomitant]
     Route: 048
     Dates: start: 20041108, end: 20041206
  7. RYTHMODAN [Concomitant]
     Route: 048
     Dates: start: 20041108, end: 20041206
  8. OXYCONTIN [Concomitant]
     Route: 048
     Dates: start: 20041202, end: 20041207
  9. GASTER [Concomitant]
     Route: 048
     Dates: start: 20041129, end: 20041206
  10. NEORAL [Suspect]
     Indication: CORD BLOOD TRANSPLANT THERAPY
     Dosage: UNK, UNK
     Route: 065
     Dates: start: 20041125, end: 20040206
  11. FLUDARABINE PHOSPHATE [Concomitant]
     Indication: CORD BLOOD TRANSPLANT THERAPY
     Dosage: 180 MG/M2
     Route: 065
  12. BUSULFAN [Concomitant]
     Indication: CORD BLOOD TRANSPLANT THERAPY
     Dosage: 8 MG/KG/D
     Route: 065

REACTIONS (6)
  - CYTOMEGALOVIRUS INFECTION [None]
  - DRUG ERUPTION [None]
  - ERYTHEMA [None]
  - SECONDARY IMMUNODEFICIENCY [None]
  - SEPTIC SHOCK [None]
  - TOXIC EPIDERMAL NECROLYSIS [None]
